FAERS Safety Report 9557904 (Version 1)
Quarter: 2013Q3

REPORT INFORMATION
  Report Type: Spontaneous
  Country: US (occurrence: US)
  Receive Date: 20130926
  Receipt Date: 20130926
  Transmission Date: 20140515
  Serious: Yes (Death, Hospitalization)
  Sender: FDA-Public Use
  Company Number: US-BAYER-2013-112460

PATIENT
  Age: 26 Year
  Sex: Male
  Weight: 58.96 kg

DRUGS (2)
  1. ALEVE CAPLET [Suspect]
     Indication: THROMBOSIS
     Dosage: 2 DF, BID
     Route: 048
     Dates: start: 20130315, end: 201308
  2. ALEVE CAPLET [Suspect]
     Indication: THROMBOSIS
     Dosage: 2 DF, BID
     Route: 048
     Dates: start: 20130315

REACTIONS (10)
  - Coronary artery embolism [Fatal]
  - Cyanosis [Fatal]
  - Pulmonary embolism [None]
  - Lung neoplasm [None]
  - Dyspnoea [None]
  - Non-cardiac chest pain [None]
  - Back pain [None]
  - Off label use [None]
  - Extra dose administered [None]
  - Incorrect drug administration duration [None]
